FAERS Safety Report 6247250-X (Version None)
Quarter: 2009Q2

REPORT INFORMATION
  Report Type: 
  Country: None (occurrence: None)
  Receive Date: 20090624
  Receipt Date: 20090624
  Transmission Date: 20091009
  Serious: Yes (Life-Threatening, Hospitalization)
  Sender: FDA-Public Use
  Company Number: None

PATIENT
  Sex: Female
  Weight: 77.9 kg

DRUGS (4)
  1. DOXEPIN HCL [Suspect]
     Indication: DEPRESSION
     Dosage: 150MG PO
     Route: 048
  2. ABILIFY [Suspect]
     Indication: DEPRESSION
     Dosage: 2MG PO
     Route: 048
  3. ABILIFY [Suspect]
     Indication: SCHIZOPHRENIA
     Dosage: 2MG PO
     Route: 048
  4. SINEQUAN [Concomitant]

REACTIONS (3)
  - ALCOHOL WITHDRAWAL SYNDROME [None]
  - ELECTROCARDIOGRAM QRS COMPLEX PROLONGED [None]
  - OVERDOSE [None]
